FAERS Safety Report 6958535-3 (Version None)
Quarter: 2010Q3

REPORT INFORMATION
  Report Type: 
  Country: None (occurrence: None)
  Receive Date: 20100831
  Receipt Date: 20100825
  Transmission Date: 20110219
  Serious: Yes (Other)
  Sender: FDA-Public Use
  Company Number: US-MERCK-1008USA03645

PATIENT

DRUGS (1)
  1. INVANZ [Suspect]
     Route: 065

REACTIONS (1)
  - RENAL FAILURE ACUTE [None]
